FAERS Safety Report 9841025 (Version 2)
Quarter: 2014Q1

REPORT INFORMATION
  Report Type: Spontaneous
  Country: US (occurrence: US)
  Receive Date: 20140124
  Receipt Date: 20140306
  Transmission Date: 20141002
  Serious: Yes (Hospitalization, Other)
  Sender: FDA-Public Use
  Company Number: US-ASTELLAS-2014US000555

PATIENT
  Age: 64 Year
  Sex: Male
  Weight: 102 kg

DRUGS (2)
  1. PROGRAF [Suspect]
     Indication: LUNG TRANSPLANT
     Dosage: 5 MG, UID/QD
     Route: 048
     Dates: start: 20130423
  2. CELLCEPT                           /01275102/ [Concomitant]
     Indication: TRANSPLANT
     Dosage: 1000 MG, BID
     Route: 048
     Dates: start: 20130423

REACTIONS (3)
  - Off label use [Unknown]
  - Influenza [Recovered/Resolved]
  - Fungal infection [Recovering/Resolving]
